FAERS Safety Report 8969516 (Version 1)
Quarter: 2012Q4

REPORT INFORMATION
  Report Type: 
  Country: GB (occurrence: GB)
  Receive Date: 20121217
  Receipt Date: 20121217
  Transmission Date: 20130627
  Serious: Yes (Disabling, Other)
  Sender: FDA-Public Use
  Company Number: PHHY2012GB114881

PATIENT
  Age: 70 Year
  Sex: Male

DRUGS (8)
  1. CLARITHROMYCIN [Suspect]
     Indication: DERMATITIS
     Dosage: 500 mg, BID
     Route: 048
     Dates: start: 20121122, end: 20121129
  2. TIOTROPIUM [Concomitant]
  3. SLO-PHYLLIN [Concomitant]
  4. SIMVASTATIN [Concomitant]
  5. SERETIDE [Concomitant]
  6. SALBUTAMOL [Concomitant]
  7. FUROSEMIDE [Concomitant]
  8. CHLORPHENAMINE [Concomitant]

REACTIONS (2)
  - Chronic obstructive pulmonary disease [Recovered/Resolved]
  - Wheezing [Recovered/Resolved]
